FAERS Safety Report 8389255-9 (Version None)
Quarter: 2012Q2

REPORT INFORMATION
  Report Type: 
  Country: None (occurrence: None)
  Receive Date: 20120528
  Receipt Date: 20120522
  Transmission Date: 20120825
  Serious: Yes (Hospitalization)
  Sender: FDA-Public Use
  Company Number: FR-UCBSA-050668

PATIENT
  Age: 45 Year
  Sex: Female

DRUGS (2)
  1. CHEMOTHERAPY [Concomitant]
     Indication: BRAIN NEOPLASM
     Dosage: UNKNOWN DOSE
     Dates: end: 20120108
  2. KEPPRA [Suspect]
     Indication: EPILEPSY
     Route: 048
     Dates: start: 20111101

REACTIONS (1)
  - PANCYTOPENIA [None]
